FAERS Safety Report 5048535-5 (Version None)
Quarter: 2006Q3

REPORT INFORMATION
  Report Type: 
  Country: None (occurrence: None)
  Receive Date: 20060705
  Receipt Date: 20060109
  Transmission Date: 20061208
  Serious: Yes (Congenital Anomaly)
  Sender: FDA-Public Use
  Company Number: 0601957US

PATIENT
  Age: 1 Day
  Sex: Male

DRUGS (4)
  1. BOTOX [Suspect]
     Indication: SKIN WRINKLING
     Dosage: SEE IMAGE
     Dates: start: 20040728, end: 20040728
  2. BOTOX [Suspect]
     Indication: SKIN WRINKLING
     Dosage: SEE IMAGE
     Dates: start: 20040818, end: 20040818
  3. HYDROXOCOBALAMIN (HYDROXOCOBALAMIN) [Concomitant]
  4. ASACOL [Concomitant]

REACTIONS (3)
  - CAESAREAN SECTION [None]
  - DRUG EXPOSURE DURING PREGNANCY [None]
  - LARYNGOMALACIA [None]
